FAERS Safety Report 9685594 (Version 2)
Quarter: 2014Q1

REPORT INFORMATION
  Report Type: Spontaneous
  Country: US (occurrence: US)
  Receive Date: 20131113
  Receipt Date: 20140212
  Transmission Date: 20141002
  Serious: Yes (Other)
  Sender: FDA-Public Use
  Company Number: US-BAYER-2013-137737

PATIENT
  Age: 29 Year
  Sex: Female
  Weight: 77.1 kg

DRUGS (2)
  1. MIRENA [Suspect]
     Indication: CONTRACEPTION
     Dosage: 20 MCG/DL, HS
     Route: 015
     Dates: start: 20091202
  2. ALBUTEROL [Concomitant]
     Indication: ASTHMA
     Dosage: UNK
     Dates: start: 200304

REACTIONS (10)
  - Uterine perforation [None]
  - Migraine [None]
  - Device issue [None]
  - Emotional distress [None]
  - Injury [None]
  - Depression [None]
  - Anxiety [None]
  - Mental disorder [None]
  - Back pain [None]
  - Abdominal pain [None]
